FAERS Safety Report 16588416 (Version 1)
Quarter: 2019Q3

REPORT INFORMATION
  Report Type: Spontaneous
  Country: US (occurrence: US)
  Receive Date: 20190718
  Receipt Date: 20190718
  Transmission Date: 20191004
  Serious: Yes (Hospitalization, Other)
  Sender: FDA-Public Use
  Company Number: US-PCCINC-2019-PEL-000204

PATIENT

DRUGS (5)
  1. BACLOFEN. [Concomitant]
     Active Substance: BACLOFEN
     Indication: MUSCLE SPASTICITY
     Dosage: 10 MILLIGRAM, TID
     Route: 048
  2. SALINE                             /00075401/ [Concomitant]
     Active Substance: SODIUM CHLORIDE
     Indication: PRODUCT USED FOR UNKNOWN INDICATION
     Dosage: 1 ML/ML 0.006 ML/DAY
     Route: 042
  3. SALINE                             /00075401/ [Concomitant]
     Active Substance: SODIUM CHLORIDE
     Dosage: 99.9 MCG/DAY
     Route: 042
  4. GABLOFEN [Concomitant]
     Active Substance: BACLOFEN
     Indication: MUSCLE SPASTICITY
     Dosage: 375 MICROGRAM PER DAY
     Route: 037
  5. GABLOFEN [Suspect]
     Active Substance: BACLOFEN
     Indication: MUSCLE SPASTICITY
     Dosage: UNK
     Route: 037

REACTIONS (12)
  - Respiratory failure [Recovered/Resolved]
  - Hypotonia [Recovered/Resolved]
  - Aspiration [Recovered/Resolved]
  - Coma [Recovered/Resolved]
  - Device issue [Recovered/Resolved]
  - Hypokinesia [Recovered/Resolved]
  - Depressed level of consciousness [Recovered/Resolved]
  - Decubitus ulcer [Unknown]
  - Device malfunction [Recovered/Resolved]
  - Overdose [Recovered/Resolved]
  - Respiratory tract infection [Unknown]
  - Apnoea [Recovered/Resolved]

NARRATIVE: CASE EVENT DATE: 20181129
